FAERS Safety Report 8796658 (Version 1)
Quarter: 2012Q4

REPORT INFORMATION
  Report Type: 
  Country: US (occurrence: US)
  Receive Date: 20120919
  Receipt Date: 20120919
  Transmission Date: 20130627
  Serious: No
  Sender: FDA-Public Use
  Company Number: US-ASTRAZENECA-2012SE70962

PATIENT
  Age: 54 Year
  Sex: Male

DRUGS (2)
  1. PULMICORT [Suspect]
     Route: 055
  2. PULMICORT [Suspect]
     Route: 055

REACTIONS (2)
  - Lung disorder [Unknown]
  - Drug effect decreased [Unknown]
